FAERS Safety Report 5315839-8 (Version None)
Quarter: 2007Q2

REPORT INFORMATION
  Report Type: 
  Country: None (occurrence: None)
  Receive Date: 20070503
  Receipt Date: 20070419
  Transmission Date: 20071010
  Serious: Yes (Hospitalization)
  Sender: FDA-Public Use
  Company Number: ES-ELI_LILLY_AND_COMPANY-ES200704005824

PATIENT
  Age: 86 Year
  Sex: Female

DRUGS (2)
  1. FORTEO [Suspect]
     Indication: OSTEOPOROSIS
     Dosage: 20 UG, DAILY (1/D)
     Route: 058
     Dates: start: 20060701, end: 20070316
  2. ALMAX [Concomitant]

REACTIONS (6)
  - ABDOMINAL INFECTION [None]
  - COMA [None]
  - INTESTINAL PERFORATION [None]
  - RESPIRATORY FAILURE [None]
  - SKIN ULCER [None]
  - VOMITING [None]
